FAERS Safety Report 6899867-7 (Version None)
Quarter: 2010Q3

REPORT INFORMATION
  Report Type: 
  Country: None (occurrence: None)
  Receive Date: 20100803
  Receipt Date: 20100721
  Transmission Date: 20110219
  Serious: Yes (Other)
  Sender: FDA-Public Use
  Company Number: NL-ELI_LILLY_AND_COMPANY-NL201002006464

PATIENT
  Sex: Female
  Weight: 89 kg

DRUGS (4)
  1. FORTEO [Suspect]
     Indication: OSTEOPOROSIS
     Dosage: 20 UG, UNK
     Route: 058
     Dates: start: 20100209, end: 20100404
  2. FORTEO [Suspect]
  3. COZAAR [Concomitant]
     Indication: BLOOD PRESSURE INCREASED
     Dosage: 50 UG, DAILY (1/D)
     Route: 048
     Dates: start: 20000101
  4. COZAAR [Concomitant]
     Dosage: 50 MG, 1DD1
     Route: 048
     Dates: start: 19990101

REACTIONS (12)
  - BONE PAIN [None]
  - BRONCHITIS [None]
  - DIARRHOEA [None]
  - DIZZINESS [None]
  - HEART RATE IRREGULAR [None]
  - INFLUENZA [None]
  - MOOD ALTERED [None]
  - NASOPHARYNGITIS [None]
  - PALPITATIONS [None]
  - PNEUMONIA [None]
  - PNEUMONITIS [None]
  - SINUSITIS [None]
